FAERS Safety Report 14685204 (Version 1)
Quarter: 2018Q1

REPORT INFORMATION
  Report Type: Spontaneous
  Country: US (occurrence: US)
  Receive Date: 20180327
  Receipt Date: 20180327
  Transmission Date: 20180509
  Serious: No
  Sender: FDA-Public Use
  Company Number: US-BAYER-2018-051286

PATIENT
  Age: 76 Year
  Sex: Female
  Weight: 70.98 kg

DRUGS (6)
  1. VITAMIN D [Concomitant]
     Active Substance: CHOLECALCIFEROL
  2. NORVASC [Concomitant]
     Active Substance: AMLODIPINE BESYLATE
  3. MIRALAX [Suspect]
     Active Substance: POLYETHYLENE GLYCOL 3350
     Indication: GASTROINTESTINAL DISORDER
     Dosage: 1 CAPFUL 2-3 TIMES A WEEK DOSE
     Route: 048
     Dates: start: 20180313, end: 20180314
  4. TURMERIC [Concomitant]
     Active Substance: HERBALS\TURMERIC
  5. PROBIOTICA [Concomitant]
     Active Substance: PROBIOTICS NOS
  6. MIRALAX [Suspect]
     Active Substance: POLYETHYLENE GLYCOL 3350
     Indication: GASTROINTESTINAL DISORDER
     Dosage: 1 CAPFUL 2-3 TIMES A WEEK DOSE
     Route: 048

REACTIONS (3)
  - Product taste abnormal [Unknown]
  - Poor quality drug administered [Unknown]
  - Product odour abnormal [None]

NARRATIVE: CASE EVENT DATE: 20180313
